FAERS Safety Report 7972509-5 (Version None)
Quarter: 2011Q4

REPORT INFORMATION
  Report Type: 
  Country: None (occurrence: None)
  Receive Date: 20111122
  Receipt Date: 20110620
  Transmission Date: 20120403
  Serious: No
  Sender: FDA-Public Use
  Company Number: PHHY2011US39431

PATIENT
  Age: 53 Year
  Sex: Female
  Weight: 185 kg

DRUGS (9)
  1. MEDROXYPROGESTERONE [Concomitant]
  2. AMLODIPINE [Concomitant]
  3. ESTRADIOL [Concomitant]
  4. OMEPRAZOLE [Concomitant]
  5. GILENYA [Suspect]
     Indication: RELAPSING-REMITTING MULTIPLE SCLEROSIS
     Dosage: 0.5 MG, QD, ORAL
     Route: 048
     Dates: start: 20110427
  6. LISINOPRIL/HCTZ (HYDROCHLOROTHIAZIDE, LISINOPRIL) [Concomitant]
  7. GABAPENTIN [Concomitant]
  8. PRAVASTATIN [Concomitant]
  9. CITALOPRAM HYDROBROMIDE [Concomitant]

REACTIONS (5)
  - TONGUE BLISTERING [None]
  - VASODILATATION [None]
  - NERVOUSNESS [None]
  - NAUSEA [None]
  - DYSPNOEA [None]
